FAERS Safety Report 14506149 (Version 2)
Quarter: 2018Q1

REPORT INFORMATION
  Report Type: Spontaneous
  Country: US (occurrence: US)
  Receive Date: 20180208
  Receipt Date: 20180224
  Transmission Date: 20180509
  Serious: Yes (Life-Threatening, Hospitalization)
  Sender: FDA-Public Use
  Company Number: US-TEVA-2018-US-855805

PATIENT
  Age: 28 Year
  Sex: Male

DRUGS (1)
  1. OXYCODONE [Suspect]
     Active Substance: OXYCODONE
     Route: 048

REACTIONS (4)
  - Paroxysmal sympathetic hyperactivity [Recovering/Resolving]
  - Toxic leukoencephalopathy [Recovering/Resolving]
  - Drug abuse [Recovering/Resolving]
  - Intentional overdose [Recovering/Resolving]
